FAERS Safety Report 24251987 (Version 1)
Quarter: 2024Q3

REPORT INFORMATION
  Report Type: Spontaneous
  Country: US (occurrence: US)
  Receive Date: 20240827
  Receipt Date: 20240827
  Transmission Date: 20241016
  Serious: Yes (Other)
  Sender: MERCK
  Company Number: US-009507513-2408USA008408

PATIENT
  Sex: Female
  Weight: 53.5 kg

DRUGS (13)
  1. WINREVAIR [Suspect]
     Active Substance: SOTATERCEPT-CSRK
     Indication: Product used for unknown indication
     Dosage: UNK
     Route: 065
     Dates: end: 2024
  2. TREPROSTINIL SODIUM [Suspect]
     Active Substance: TREPROSTINIL SODIUM
     Indication: Pulmonary arterial hypertension
     Dosage: 0.11111 UG/KG, CONTINUING
     Route: 041
     Dates: start: 2024
  3. TREPROSTINIL SODIUM [Suspect]
     Active Substance: TREPROSTINIL SODIUM
     Dosage: UNK, CONTINUING, IV DRIP
     Route: 041
     Dates: start: 20240410
  4. TADALAFIL [Concomitant]
     Active Substance: TADALAFIL
  5. FUROSEMIDE [Concomitant]
     Active Substance: FUROSEMIDE
  6. POTASSIUM CHLORIDE [Concomitant]
     Active Substance: POTASSIUM CHLORIDE
  7. CURCUMIN [Concomitant]
     Active Substance: CURCUMIN
  8. OPSUMIT [Concomitant]
     Active Substance: MACITENTAN
  9. LEVOTHYROXINE SODIUM [Concomitant]
     Active Substance: LEVOTHYROXINE SODIUM
  10. VITAMINS [Concomitant]
     Active Substance: VITAMINS
  11. OXYGEN [Concomitant]
     Active Substance: OXYGEN
  12. ZINC [Concomitant]
     Active Substance: ZINC
  13. FERROUS SULFATE [Concomitant]
     Active Substance: FERROUS SULFATE

REACTIONS (1)
  - Thrombocytopenia [Unknown]
